FAERS Safety Report 17760985 (Version 1)
Quarter: 2020Q2

REPORT INFORMATION
  Report Type: Spontaneous
  Country: US (occurrence: US)
  Receive Date: 20200508
  Receipt Date: 20200508
  Transmission Date: 20200714
  Serious: No
  Sender: FDA-Public Use
  Company Number: None

PATIENT

DRUGS (4)
  1. METHYLPREDNISOLONE. [Concomitant]
     Active Substance: METHYLPREDNISOLONE
  2. TYLENOL [Concomitant]
     Active Substance: ACETAMINOPHEN
  3. CETIRIZINE [Concomitant]
     Active Substance: CETIRIZINE HYDROCHLORIDE
  4. REMICADE [Suspect]
     Active Substance: INFLIXIMAB
     Dosage: ?          OTHER FREQUENCY:TWICE A MONTH;?
     Route: 042
     Dates: start: 20200305, end: 20200414

REACTIONS (3)
  - Vomiting [None]
  - Wheezing [None]
  - Screaming [None]

NARRATIVE: CASE EVENT DATE: 20200414
